FAERS Safety Report 20359124 (Version 1)
Quarter: 2022Q1

REPORT INFORMATION
  Report Type: Spontaneous
  Country: US (occurrence: US)
  Receive Date: 20220120
  Receipt Date: 20220120
  Transmission Date: 20220424
  Serious: Yes (Other)
  Sender: FDA-Public Use
  Company Number: US-HETERO-HET2022US00073

PATIENT

DRUGS (1)
  1. RITONAVIR [Suspect]
     Active Substance: RITONAVIR
     Indication: COVID-19
     Dosage: 3 IN THE MORNING, 12 AND HALF HOURS LATER 3 AT NIGHT
     Route: 065
     Dates: start: 20220108, end: 20220109

REACTIONS (3)
  - Heart rate decreased [Unknown]
  - Ageusia [Unknown]
  - Headache [Unknown]

NARRATIVE: CASE EVENT DATE: 20220108
